FAERS Safety Report 4477317-8 (Version None)
Quarter: 2004Q4

REPORT INFORMATION
  Report Type: 
  Country: None (occurrence: None)
  Receive Date: 20041013
  Receipt Date: 20040928
  Transmission Date: 20050328
  Serious: Yes (Hospitalization)
  Sender: FDA-Public Use
  Company Number: 8007506

PATIENT
  Age: 73 Year
  Sex: Male
  Weight: 80 kg

DRUGS (8)
  1. LEVETIRACETAM [Suspect]
     Indication: EPILEPSY
     Dosage: 1000 MG/D PO
     Route: 048
     Dates: start: 20040526, end: 20040531
  2. LEVETIRACETAM [Suspect]
     Indication: EPILEPSY
     Dosage: 500 MG/D PO
     Route: 048
     Dates: start: 20040601, end: 20040602
  3. NICERGOLIN [Concomitant]
  4. CITALOPRAM HYDROBROMID [Concomitant]
  5. CLOBAZAM [Concomitant]
  6. DIGOXIN [Concomitant]
  7. RAMIPRIL [Concomitant]
  8. GABAPENTIN [Concomitant]

REACTIONS (4)
  - CONFUSIONAL STATE [None]
  - DISTURBANCE IN ATTENTION [None]
  - EARLY MORNING AWAKENING [None]
  - FATIGUE [None]
